FAERS Safety Report 9196215 (Version 2)
Quarter: 2013Q2

REPORT INFORMATION
  Report Type: Spontaneous
  Country: PR (occurrence: PR)
  Receive Date: 20130328
  Receipt Date: 20130403
  Transmission Date: 20140414
  Serious: Yes (Life-Threatening, Hospitalization)
  Sender: FDA-Public Use
  Company Number: PR-TEVA-393103ISR

PATIENT
  Age: 71 Year
  Sex: Male

DRUGS (3)
  1. METOPROLOL [Suspect]
     Indication: BLOOD PRESSURE MANAGEMENT
     Dosage: 300 MILLIGRAM DAILY;
     Route: 065
  2. LISINOPRIL [Suspect]
     Indication: BLOOD PRESSURE MANAGEMENT
     Dosage: 40 MILLIGRAM DAILY;
     Route: 065
  3. COTRIMOXAZOLE [Suspect]
     Indication: CELLULITIS
     Route: 048

REACTIONS (6)
  - Hyperkalaemia [Recovered/Resolved]
  - Myalgia [Unknown]
  - Decreased activity [Unknown]
  - Unresponsive to stimuli [Recovered/Resolved]
  - Atrioventricular block [Recovered/Resolved]
  - Blood creatinine increased [Recovered/Resolved]
